FAERS Safety Report 5333132-4 (Version None)
Quarter: 2007Q2

REPORT INFORMATION
  Report Type: 
  Country: None (occurrence: None)
  Receive Date: 20070521
  Receipt Date: 20070521
  Transmission Date: 20071010
  Serious: Yes (Other)
  Sender: FDA-Public Use
  Company Number: None

PATIENT
  Age: 22 Year
  Sex: Male
  Weight: 79.3795 kg

DRUGS (2)
  1. ISONIAZID [Suspect]
     Indication: CHEST X-RAY
     Dosage: 300MG 1 TABLET DAILY PO
     Route: 048
     Dates: start: 20070503, end: 20070516
  2. ISONIAZID [Suspect]
     Indication: TUBERCULOSIS SKIN TEST POSITIVE
     Dosage: 300MG 1 TABLET DAILY PO
     Route: 048
     Dates: start: 20070503, end: 20070516

REACTIONS (7)
  - CHROMATURIA [None]
  - COGNITIVE DISORDER [None]
  - DEPRESSION [None]
  - HEADACHE [None]
  - HYPOAESTHESIA [None]
  - MENTAL IMPAIRMENT [None]
  - PERIPHERAL COLDNESS [None]
